FAERS Safety Report 8285191-7 (Version None)
Quarter: 2012Q2

REPORT INFORMATION
  Report Type: 
  Country: None (occurrence: None)
  Receive Date: 20120413
  Receipt Date: 20120206
  Transmission Date: 20120825
  Serious: No
  Sender: FDA-Public Use
  Company Number: US-ASTRAZENECA-2012SE08002

PATIENT
  Sex: Female

DRUGS (2)
  1. NEXIUM [Suspect]
     Route: 048
  2. NEXIUM [Suspect]
     Indication: GASTROOESOPHAGEAL REFLUX DISEASE
     Route: 048

REACTIONS (6)
  - MENTAL IMPAIRMENT [None]
  - DRUG INEFFECTIVE [None]
  - ADVERSE EVENT [None]
  - OFF LABEL USE [None]
  - DYSPEPSIA [None]
  - MUSCULAR WEAKNESS [None]
